FAERS Safety Report 4307638-0 (Version None)
Quarter: 2004Q1

REPORT INFORMATION
  Report Type: 
  Country: None (occurrence: None)
  Receive Date: 20040219
  Receipt Date: 20040205
  Transmission Date: 20041129
  Serious: No
  Sender: FDA-Public Use
  Company Number: 7387

PATIENT
  Age: 34 Year
  Sex: Female

DRUGS (3)
  1. METHOTREXATE [Suspect]
     Indication: CROHN'S DISEASE
     Dosage: 15 MG WEEKLY, SC
     Route: 058
     Dates: start: 20010101, end: 20031029
  2. REMICADE [Suspect]
     Indication: CROHN'S DISEASE
     Dosage: IV
     Route: 042
     Dates: start: 20010101, end: 20031021
  3. PAMIDRONATE DISODIUM [Concomitant]

REACTIONS (1)
  - DRUG EXPOSURE DURING PREGNANCY [None]
